FAERS Safety Report 6912483-3 (Version None)
Quarter: 2010Q3

REPORT INFORMATION
  Report Type: 
  Country: None (occurrence: None)
  Receive Date: 20100806
  Receipt Date: 20080611
  Transmission Date: 20110219
  Serious: No
  Sender: FDA-Public Use
  Company Number: US-PFIZER INC-2008049940

PATIENT
  Sex: Female
  Weight: 56.8 kg

DRUGS (7)
  1. DETROL LA [Suspect]
     Indication: HYPERTONIC BLADDER
     Route: 048
     Dates: start: 20070101
  2. CELEBREX [Concomitant]
     Indication: ARTHRITIS
     Route: 048
  3. PROTONIX [Concomitant]
     Route: 048
  4. HYZAAR [Concomitant]
     Indication: HYPERTENSION
     Route: 048
  5. BENZONATATE [Concomitant]
     Indication: OROPHARYNGEAL PAIN
     Route: 048
  6. FOSAMAX [Concomitant]
     Route: 048
  7. FISH OIL [Concomitant]
     Route: 048

REACTIONS (2)
  - DRY MOUTH [None]
  - DYSPEPSIA [None]
